FAERS Safety Report 7763459-8 (Version None)
Quarter: 2011Q3

REPORT INFORMATION
  Report Type: 
  Country: None (occurrence: None)
  Receive Date: 20110920
  Receipt Date: 20110915
  Transmission Date: 20111222
  Serious: Yes (Hospitalization, Other)
  Sender: FDA-Public Use
  Company Number: FR-PFIZER INC-2011218273

PATIENT
  Age: 83 Year
  Sex: Female

DRUGS (3)
  1. SOLU-MEDROL [Suspect]
     Dosage: 40 MG, UNK
  2. CHEMOTHERAPY NOS [Concomitant]
     Indication: OVARIAN CANCER
  3. ZANTAC [Suspect]
     Indication: PREMEDICATION

REACTIONS (4)
  - ANAPHYLACTIC SHOCK [None]
  - MALAISE [None]
  - BLOOD PRESSURE DECREASED [None]
  - LOSS OF CONSCIOUSNESS [None]
